FAERS Safety Report 8445630-5 (Version None)
Quarter: 2012Q2

REPORT INFORMATION
  Report Type: 
  Country: None (occurrence: None)
  Receive Date: 20120611
  Receipt Date: 20120530
  Transmission Date: 20120825
  Serious: Yes (Hospitalization, Other)
  Sender: FDA-Public Use
  Company Number: 2012P1037805

PATIENT
  Age: 74 Year
  Sex: Female
  Weight: 55 kg

DRUGS (1)
  1. FAMOTIDINE [Suspect]
     Indication: GASTRODUODENAL ULCER
     Dosage: 20 MG;PO
     Route: 048

REACTIONS (3)
  - DUODENITIS [None]
  - DRUG INEFFECTIVE [None]
  - DECREASED APPETITE [None]
